FAERS Safety Report 9081266 (Version 2)
Quarter: 2013Q1

REPORT INFORMATION
  Report Type: Spontaneous
  Country: US (occurrence: US)
  Receive Date: 20130130
  Receipt Date: 20130313
  Transmission Date: 20140127
  Serious: Yes (Other)
  Sender: FDA-Public Use
  Company Number: US-ELI_LILLY_AND_COMPANY-US201301009481

PATIENT
  Age: 71 Year
  Sex: Male

DRUGS (1)
  1. CIALIS [Suspect]
     Indication: ERECTILE DYSFUNCTION
     Dosage: 5 MG, QD
     Dates: start: 20110408, end: 201212

REACTIONS (2)
  - Plasma cell myeloma [Recovering/Resolving]
  - Drug ineffective [Unknown]
